FAERS Safety Report 9838031 (Version 1)
Quarter: 2014Q1

REPORT INFORMATION
  Report Type: Report from Study
  Country: CA (occurrence: CA)
  Receive Date: 20140123
  Receipt Date: 20140123
  Transmission Date: 20141002
  Serious: Yes (Hospitalization)
  Sender: FDA-Public Use
  Company Number: CA-JNJFOC-20140110664

PATIENT
  Age: 49 Year
  Sex: Male
  Weight: 97 kg

DRUGS (9)
  1. REMICADE [Suspect]
     Indication: CROHN^S DISEASE
     Route: 042
     Dates: start: 20110823
  2. VIMPAT [Concomitant]
     Route: 048
  3. DILANTIN [Concomitant]
     Route: 065
  4. METOPROLOL [Concomitant]
     Route: 065
  5. HYDROCHLOROTHIAZIDE [Concomitant]
     Route: 065
  6. ACETYL SALICYLIC ACID [Concomitant]
     Route: 048
  7. FENTANYL [Concomitant]
     Route: 065
  8. VITAMIN B12 [Concomitant]
     Route: 065
  9. OCTREOTIDE [Concomitant]
     Indication: FISTULA
     Dosage: WHEN NECESSARY
     Route: 050

REACTIONS (3)
  - Cerebrovascular accident [Unknown]
  - Convulsion [Recovered/Resolved]
  - Medication error [Unknown]
